FAERS Safety Report 14732478 (Version 1)
Quarter: 2018Q2

REPORT INFORMATION
  Report Type: Report from Study
  Country: US (occurrence: US)
  Receive Date: 20180409
  Receipt Date: 20180409
  Transmission Date: 20180711
  Serious: Yes (Other)
  Sender: FDA-Public Use
  Company Number: PHEH2018US013143

PATIENT
  Age: 38 Year
  Sex: Female

DRUGS (6)
  1. COSENTYX [Suspect]
     Active Substance: SECUKINUMAB
     Indication: GUTTATE PSORIASIS
  2. COSENTYX [Suspect]
     Active Substance: SECUKINUMAB
     Indication: PSORIATIC ARTHROPATHY
     Dosage: 300 MG, QMO
     Route: 058
     Dates: start: 201711
  3. COSENTYX [Suspect]
     Active Substance: SECUKINUMAB
     Indication: PSORIASIS
  4. COSENTYX [Suspect]
     Active Substance: SECUKINUMAB
     Indication: ERYTHRODERMIC PSORIASIS
  5. COSENTYX [Suspect]
     Active Substance: SECUKINUMAB
     Indication: PUSTULAR PSORIASIS
  6. HYDROCODONE [Concomitant]
     Active Substance: HYDROCODONE
     Indication: ARTHRALGIA
     Dosage: 5 MG, UNK
     Route: 065

REACTIONS (17)
  - Pain [Unknown]
  - Gait disturbance [Recovering/Resolving]
  - Drug effect incomplete [Unknown]
  - Depression [Unknown]
  - Gastrointestinal disorder [Unknown]
  - Anxiety [Unknown]
  - Vomiting [Unknown]
  - Foot deformity [Unknown]
  - Insomnia [Unknown]
  - Fatigue [Unknown]
  - Mobility decreased [Recovering/Resolving]
  - Asthenia [Unknown]
  - Intervertebral disc degeneration [Unknown]
  - Finger deformity [Unknown]
  - Malaise [Unknown]
  - Dysstasia [Unknown]
  - Weight increased [Unknown]
